FAERS Safety Report 19645974 (Version 2)
Quarter: 2021Q3

REPORT INFORMATION
  Report Type: Spontaneous
  Country: IN (occurrence: IN)
  Receive Date: 20210802
  Receipt Date: 20210817
  Transmission Date: 20211014
  Serious: Yes (Death, Life-Threatening, Hospitalization, Other)
  Sender: FDA-Public Use
  Company Number: IN-ACCORD-233486

PATIENT
  Age: 48 Year
  Sex: Female

DRUGS (7)
  1. VINCRISTINE [Suspect]
     Active Substance: VINCRISTINE
     Indication: RENAL CANCER
     Dates: start: 2018
  2. ETOPOSIDE. [Suspect]
     Active Substance: ETOPOSIDE
     Indication: PRIMITIVE NEUROECTODERMAL TUMOUR
     Dates: start: 2018
  3. IFOSFAMIDE. [Suspect]
     Active Substance: IFOSFAMIDE
     Indication: RENAL CANCER
     Dates: start: 2018
  4. VINCRISTINE [Suspect]
     Active Substance: VINCRISTINE
     Indication: PRIMITIVE NEUROECTODERMAL TUMOUR
     Dates: start: 2018
  5. GRANULOCYTE COLONY?STIMULATING FACTOR [Concomitant]
     Active Substance: GRANULOCYTE COLONY-STIMULATING FACTOR NOS
     Indication: RENAL CANCER
     Dates: start: 201805
  6. ETOPOSIDE. [Suspect]
     Active Substance: ETOPOSIDE
     Indication: RENAL CANCER
     Dates: start: 2018
  7. FILGRASTIM/GRANULOCYTE COLONY STIMULATING/LENOGRASTIM [Concomitant]
     Active Substance: GRANULOCYTE COLONY-STIMULATING FACTOR NOS
     Indication: PRIMITIVE NEUROECTODERMAL TUMOUR
     Dates: start: 201805

REACTIONS (3)
  - Pyrexia [Fatal]
  - Pancytopenia [Fatal]
  - Drug intolerance [Fatal]
